FAERS Safety Report 25480501 (Version 1)
Quarter: 2025Q2

REPORT INFORMATION
  Report Type: Spontaneous
  Country: BR (occurrence: BR)
  Receive Date: 20250625
  Receipt Date: 20250625
  Transmission Date: 20250716
  Serious: No
  Sender: PFIZER
  Company Number: BR-PFIZER INC-PV202500073477

PATIENT
  Age: 3 Year
  Sex: Female

DRUGS (1)
  1. SOMATROGON [Suspect]
     Active Substance: SOMATROGON
     Dates: start: 20250408

REACTIONS (3)
  - Incorrect dose administered [Unknown]
  - Device mechanical issue [Unknown]
  - Wrong technique in device usage process [Unknown]
